FAERS Safety Report 18890995 (Version 1)
Quarter: 2021Q1

REPORT INFORMATION
  Report Type: Spontaneous
  Country: DE (occurrence: DE)
  Receive Date: 20210215
  Receipt Date: 20210215
  Transmission Date: 20210420
  Serious: Yes (Hospitalization, Other)
  Sender: FDA-Public Use
  Company Number: DE-009507513-2102DEU003196

PATIENT
  Sex: Female
  Weight: 100 kg

DRUGS (14)
  1. RANITIDINE HYDROCHLORIDE. [Suspect]
     Active Substance: RANITIDINE HYDROCHLORIDE
     Indication: HIATUS HERNIA
     Dosage: 300 MG, UNKNOWN; REPORTED AS: RANITIDIN 300 ? 1 A PHARMA
     Route: 065
     Dates: start: 1999
  2. KATADOLON [Suspect]
     Active Substance: FLUPIRTINE
     Indication: PRODUCT USED FOR UNKNOWN INDICATION
     Dosage: UNK, QD (DOSE NOT REPORTED)
     Route: 065
  3. RANITIDINE HYDROCHLORIDE. [Suspect]
     Active Substance: RANITIDINE HYDROCHLORIDE
     Indication: GASTROOESOPHAGEAL REFLUX DISEASE
     Dosage: 300 MG, QD(IN THE MORNING); REPORTED AS: RANITIDIN 300 ? 1 A PHARMA
     Route: 065
     Dates: start: 2015
  4. RANITIDINE HYDROCHLORIDE. [Suspect]
     Active Substance: RANITIDINE HYDROCHLORIDE
     Dosage: 300 MG, UNKNOWN (FREQUENCY NOT REPORTED): REPORTED AS: RANITIDIN 300 ? 1 A PHARMA
     Route: 065
     Dates: start: 201510, end: 201703
  5. RANITIDINE HYDROCHLORIDE. [Suspect]
     Active Substance: RANITIDINE HYDROCHLORIDE
     Dosage: 300 MG, UNKNOWN (FREQUENCY NOT REPORTED); REPORTED AS: RANITIDIN 300 ? 1 A PHARMA
     Route: 065
     Dates: start: 201710, end: 201802
  6. RANITIDINE HYDROCHLORIDE. [Suspect]
     Active Substance: RANITIDINE HYDROCHLORIDE
     Dosage: 300 MG, UNKNOWN (FREQUENCY NOT REPORTED); REPORTED AS: RANITIDIN 300 ? 1 A PHARMA
     Route: 065
     Dates: start: 201806
  7. RANITIDINE HYDROCHLORIDE. [Suspect]
     Active Substance: RANITIDINE HYDROCHLORIDE
     Dosage: 300 MG, UNKNOWN (FREQUENCY NOT REPORTED); REPORTED AS: RANITIDIN 300 ? 1 A PHARMA
     Route: 065
     Dates: end: 202001
  8. DOXEPIN HYDROCHLORIDE. [Suspect]
     Active Substance: DOXEPIN HYDROCHLORIDE
     Indication: PRODUCT USED FOR UNKNOWN INDICATION
     Dosage: UNK (DOSE AND FREQUENCY NOT REPORTED)
     Route: 065
  9. DULOXETINE HYDROCHLORIDE. [Suspect]
     Active Substance: DULOXETINE HYDROCHLORIDE
     Indication: PAIN
     Dosage: 60 MILLIGRAM, QD (60 MG, QD)
     Route: 065
     Dates: end: 201010
  10. DULOXETINE HYDROCHLORIDE. [Suspect]
     Active Substance: DULOXETINE HYDROCHLORIDE
     Indication: FIBROMYALGIA
  11. TILIDIN N [Suspect]
     Active Substance: NALOXONE HYDROCHLORIDE\TILIDINE HYDROCHLORIDE
     Indication: ARTHRALGIA
     Dosage: 8 MILLIGRAM, QD; 4 MG, BID(MORNING AND EVENING)
     Route: 065
  12. RANITIDINE HYDROCHLORIDE. [Suspect]
     Active Substance: RANITIDINE HYDROCHLORIDE
     Indication: CHRONIC GASTRITIS
     Dosage: 900 MILLIGRAM, QD; 300 MG, TID(IN PART NOV 2015); REPORTED AS: RANITIDIN 300 ? 1 A PHARMA
     Route: 065
  13. NOVALGIN (DIPYRONE) [Suspect]
     Active Substance: DIPYRONE
     Indication: PAIN
     Dosage: UNK
     Route: 065
     Dates: start: 200607
  14. MIRTAZAPINE. [Suspect]
     Active Substance: MIRTAZAPINE
     Indication: PRODUCT USED FOR UNKNOWN INDICATION
     Dosage: 15 MILLIGRAM, QD (15 MG, QD(IN THE EVENING))
     Route: 065

REACTIONS (12)
  - Nausea [Not Recovered/Not Resolved]
  - Abdominal discomfort [Not Recovered/Not Resolved]
  - Osteoarthritis [Unknown]
  - Musculoskeletal discomfort [Unknown]
  - Diarrhoea [Not Recovered/Not Resolved]
  - Congenital knee deformity [Unknown]
  - Mobility decreased [Unknown]
  - Meniscus injury [Unknown]
  - Constipation [Not Recovered/Not Resolved]
  - Joint injury [Unknown]
  - Dyspepsia [Not Recovered/Not Resolved]
  - Suicidal ideation [Not Recovered/Not Resolved]

NARRATIVE: CASE EVENT DATE: 2005
